FAERS Safety Report 4724375-9 (Version None)
Quarter: 2005Q3

REPORT INFORMATION
  Report Type: 
  Country: None (occurrence: None)
  Receive Date: 20050722
  Receipt Date: 20050714
  Transmission Date: 20060218
  Serious: Yes (Other)
  Sender: FDA-Public Use
  Company Number: GBWYE834015JUL05

PATIENT
  Sex: Female

DRUGS (1)
  1. EFFEXOR XR [Suspect]
     Dosage: 150 MG 1X PER 1 DAY
     Dates: start: 20030101

REACTIONS (2)
  - CONVULSION [None]
  - ELECTROENCEPHALOGRAM ABNORMAL [None]
